FAERS Safety Report 5015705-1 (Version None)
Quarter: 2006Q2

REPORT INFORMATION
  Report Type: 
  Country: None (occurrence: None)
  Receive Date: 20060601
  Receipt Date: 20060529
  Transmission Date: 20061013
  Serious: Yes (Hospitalization)
  Sender: FDA-Public Use
  Company Number: 2006CG00935

PATIENT
  Age: 82 Year
  Sex: Female

DRUGS (2)
  1. ATACAND [Suspect]
     Route: 048
     Dates: start: 20051201, end: 20051230
  2. BURINEX [Concomitant]

REACTIONS (5)
  - ANURIA [None]
  - DYSPNOEA [None]
  - HYPERKALAEMIA [None]
  - ORTHOPNOEA [None]
  - RENAL FAILURE ACUTE [None]
